FAERS Safety Report 23942787 (Version 2)
Quarter: 2024Q2

REPORT INFORMATION
  Report Type: Spontaneous
  Country: GB (occurrence: None)
  Receive Date: 20240605
  Receipt Date: 20240611
  Transmission Date: 20240716
  Serious: Yes (Hospitalization, Other)
  Sender: FDA-Public Use
  Company Number: 2024A129559

PATIENT
  Age: 79 Year
  Sex: Female

DRUGS (9)
  1. OMEPRAZOLE [Suspect]
     Active Substance: DONEPEZIL HYDROCHLORIDE\OMEPRAZOLE\OMEPRAZOLE MAGNESIUM
     Indication: Upper gastrointestinal haemorrhage
  2. RAMIPRIL [Suspect]
     Active Substance: RAMIPRIL
  3. DAPAGLIFLOZIN [Suspect]
     Active Substance: DAPAGLIFLOZIN
  4. APIXABAN [Suspect]
     Active Substance: APIXABAN
     Dosage: TWICE A DAY DAILY DOSE: 10 MILLIGRAM
  5. SPIRONOLACTONE [Suspect]
     Active Substance: SPIRONOLACTONE
  6. METFORMIN [Suspect]
     Active Substance: METFORMIN HYDROCHLORIDE
  7. FUROSEMIDE [Suspect]
     Active Substance: FUROSEMIDE
  8. ATORVASTATIN [Suspect]
     Active Substance: ATORVASTATIN
  9. BISOPROLOL [Suspect]
     Active Substance: BISOPROLOL\BISOPROLOL FUMARATE

REACTIONS (2)
  - Cardiac arrest [Unknown]
  - Off label use [Unknown]
